FAERS Safety Report 24567542 (Version 1)
Quarter: 2024Q4

REPORT INFORMATION
  Report Type: Spontaneous
  Country: US (occurrence: US)
  Receive Date: 20241031
  Receipt Date: 20241031
  Transmission Date: 20250115
  Serious: Yes (Other)
  Sender: ALEXION PHARMACEUTICALS
  Company Number: US-AstraZeneca-CH-00732887AM

PATIENT

DRUGS (4)
  1. TRUQAP [Suspect]
     Active Substance: CAPIVASERTIB
     Indication: Breast cancer metastatic
     Dosage: UNK
  2. TRUQAP [Suspect]
     Active Substance: CAPIVASERTIB
     Dosage: UNK
  3. TRUQAP [Suspect]
     Active Substance: CAPIVASERTIB
     Dosage: UNK
  4. TRUQAP [Suspect]
     Active Substance: CAPIVASERTIB
     Dosage: UNK

REACTIONS (2)
  - Hepatic cancer [Unknown]
  - Hyperglycaemia [Unknown]
